FAERS Safety Report 22167663 (Version 4)
Quarter: 2023Q4

REPORT INFORMATION
  Report Type: Spontaneous
  Country: US (occurrence: US)
  Receive Date: 20230403
  Receipt Date: 20231228
  Transmission Date: 20240110
  Serious: No
  Sender: FDA-Public Use
  Company Number: US-PFIZER INC-PV202300059423

PATIENT
  Age: 81 Year
  Sex: Female

DRUGS (3)
  1. IBRANCE [Suspect]
     Active Substance: PALBOCICLIB
     Indication: Breast cancer female
     Dosage: 75 MG, CYCLIC (D1-21 Q28D)
     Dates: start: 20210809, end: 20210906
  2. IBRANCE [Suspect]
     Active Substance: PALBOCICLIB
     Indication: Imaging procedure abnormal
     Dosage: 75 MG, CYCLIC (D1-21 Q28D)
     Dates: start: 20210813, end: 20220617
  3. IBRANCE [Suspect]
     Active Substance: PALBOCICLIB
     Dosage: 125 MG, CYCLIC (1 PO DAILY FOR 21 DAYS ON 7 DAYS OFF REPEAT)
     Route: 048
     Dates: start: 20221122

REACTIONS (3)
  - Depression [Unknown]
  - Visual impairment [Unknown]
  - Hypoacusis [Unknown]
